FAERS Safety Report 4524985-8 (Version None)
Quarter: 2004Q4

REPORT INFORMATION
  Report Type: 
  Country: None (occurrence: None)
  Receive Date: 20041210
  Receipt Date: 20041129
  Transmission Date: 20050328
  Serious: Yes (Other)
  Sender: FDA-Public Use
  Company Number: 2004099397

PATIENT
  Sex: Male
  Weight: 90.7194 kg

DRUGS (1)
  1. LISTERINE (MENTHOL, METHYL SALICYLATE, EUCALYPTOL, THYMOL) [Suspect]
     Indication: INTENTIONAL OVERDOSE
     Dosage: ALMOST ONE BOTTLE ONCE, ORAL
     Route: 048
     Dates: start: 20041129, end: 20041129

REACTIONS (2)
  - INTENTIONAL MISUSE [None]
  - LOSS OF CONSCIOUSNESS [None]
